FAERS Safety Report 15235348 (Version 1)
Quarter: 2018Q3

REPORT INFORMATION
  Report Type: Spontaneous
  Country: NL (occurrence: NL)
  Receive Date: 20180803
  Receipt Date: 20180803
  Transmission Date: 20181010
  Serious: Yes (Other)
  Sender: FDA-Public Use
  Company Number: NL-009507513-1808NLD000638

PATIENT

DRUGS (5)
  1. NANDROLONE DECANOATE. [Suspect]
     Active Substance: NANDROLONE DECANOATE
  2. GONADOTROPIN, CHORIONIC [Suspect]
     Active Substance: CHORIOGONADOTROPIN ALFA
  3. FINASTERIDE. [Suspect]
     Active Substance: FINASTERIDE
  4. TRENBOLONE ACETATE [Suspect]
     Active Substance: TRENBOLONE ACETATE
  5. TESTOSTERONE UNDECANOATE. [Suspect]
     Active Substance: TESTOSTERONE UNDECANOATE

REACTIONS (6)
  - Agitation [Unknown]
  - Libido decreased [Unknown]
  - Erectile dysfunction [Unknown]
  - Drug abuse [Unknown]
  - Acne [Unknown]
  - Gynaecomastia [Unknown]
